FAERS Safety Report 8286171-8 (Version None)
Quarter: 2012Q2

REPORT INFORMATION
  Report Type: 
  Country: None (occurrence: None)
  Receive Date: 20120416
  Receipt Date: 20120406
  Transmission Date: 20120825
  Serious: Yes (Hospitalization)
  Sender: FDA-Public Use
  Company Number: US-BIOGENIDEC-2012BI012634

PATIENT
  Age: 57 Year
  Sex: Male

DRUGS (3)
  1. TYSABRI [Suspect]
     Route: 042
     Dates: start: 20100330, end: 20110301
  2. TYSABRI [Suspect]
     Route: 042
     Dates: start: 20110629
  3. TYSABRI [Suspect]
     Indication: MULTIPLE SCLEROSIS
     Route: 042
     Dates: start: 20070711, end: 20091229

REACTIONS (2)
  - MULTIPLE SCLEROSIS RELAPSE [None]
  - FALL [None]
